FAERS Safety Report 4972008-9 (Version None)
Quarter: 2006Q2

REPORT INFORMATION
  Report Type: 
  Country: None (occurrence: None)
  Receive Date: 20060413
  Receipt Date: 20060313
  Transmission Date: 20061013
  Serious: Yes (Death, Hospitalization)
  Sender: FDA-Public Use
  Company Number: US-MERCK-0603USA02289

PATIENT
  Age: 74 Year
  Sex: Male
  Weight: 75 kg

DRUGS (12)
  1. VIOXX [Suspect]
     Indication: ARTHRITIS
     Route: 048
     Dates: start: 19990101, end: 20041015
  2. SIMVASTATIN [Concomitant]
     Route: 065
  3. TYLENOL (CAPLET) [Concomitant]
     Route: 065
  4. PREDNISONE [Concomitant]
     Route: 065
  5. [COMPOSITION UNSPECIFIED] [Concomitant]
     Route: 065
  6. PLAVIX [Concomitant]
     Route: 065
  7. GLUCOPHAGE [Concomitant]
     Route: 065
  8. ZANTAC [Concomitant]
     Route: 065
  9. CARDIZEM [Concomitant]
     Route: 065
  10. REGLAN [Concomitant]
     Route: 065
  11. GLYBURIDE [Concomitant]
     Route: 065
  12. ULTRALENTE INSULIN [Concomitant]
     Route: 065

REACTIONS (21)
  - ANAEMIA [None]
  - BRAIN OEDEMA [None]
  - CARDIAC FAILURE CONGESTIVE [None]
  - CEREBROVASCULAR ACCIDENT [None]
  - CHRONIC OBSTRUCTIVE PULMONARY DISEASE [None]
  - COLONIC POLYP [None]
  - DUODENAL ULCER [None]
  - GASTROINTESTINAL HAEMORRHAGE [None]
  - HAEMATEMESIS [None]
  - HAEMATURIA [None]
  - HYPERKALAEMIA [None]
  - LEUKOCYTOSIS [None]
  - LOBAR PNEUMONIA [None]
  - MENTAL STATUS CHANGES [None]
  - PEPTIC ULCER [None]
  - PLEURAL EFFUSION [None]
  - PNEUMONIA [None]
  - RENAL FAILURE [None]
  - SEPSIS [None]
  - SINUS TACHYCARDIA [None]
  - URINARY TRACT INFECTION [None]
